FAERS Safety Report 23350004 (Version 1)
Quarter: 2023Q4

REPORT INFORMATION
  Report Type: Spontaneous
  Country: JP (occurrence: JP)
  Receive Date: 20231229
  Receipt Date: 20231229
  Transmission Date: 20240110
  Serious: Yes (Life-Threatening, Hospitalization, Other)
  Sender: FDA-Public Use
  Company Number: JP-MLMSERVICE-20231213-4722036-1

PATIENT
  Age: 57 Year
  Sex: Male
  Weight: 99.5 kg

DRUGS (4)
  1. TACROLIMUS [Suspect]
     Active Substance: TACROLIMUS
     Indication: Immunosuppressant drug therapy
  2. PREDNISOLONE [Suspect]
     Active Substance: PREDNISOLONE
     Indication: Immunosuppressant drug therapy
  3. ELTROMBOPAG [Suspect]
     Active Substance: ELTROMBOPAG
     Indication: Immunosuppressant drug therapy
  4. TACROLIMUS [Suspect]
     Active Substance: TACROLIMUS
     Indication: Immunosuppressant drug therapy

REACTIONS (12)
  - Pulmonary embolism [Recovering/Resolving]
  - Hypercoagulation [Unknown]
  - Shock [Recovering/Resolving]
  - Tumour thrombosis [Recovering/Resolving]
  - Portal vein thrombosis [Recovered/Resolved]
  - Thrombotic microangiopathy [Recovered/Resolved]
  - Splenic infarction [Recovered/Resolved]
  - Hepatic infarction [Recovered/Resolved]
  - Splenic artery thrombosis [Recovered/Resolved]
  - Aortic thrombosis [Recovered/Resolved]
  - Post transplant lymphoproliferative disorder [Recovered/Resolved]
  - Deep vein thrombosis [Recovered/Resolved]
